FAERS Safety Report 9395900 (Version 3)
Quarter: 2013Q3

REPORT INFORMATION
  Report Type: Spontaneous
  Country: DE (occurrence: DE)
  Receive Date: 20130711
  Receipt Date: 20130812
  Transmission Date: 20140515
  Serious: No
  Sender: FDA-Public Use
  Company Number: DE-GLAXOSMITHKLINE-D0080436A

PATIENT
  Sex: Male
  Weight: 69 kg

DRUGS (5)
  1. REVOLADE [Suspect]
     Indication: IMMUNE THROMBOCYTOPENIC PURPURA
     Dosage: 50MG PER DAY
     Route: 048
     Dates: start: 20121130, end: 20130204
  2. TAMSULOSIN [Concomitant]
     Route: 065
  3. LEVOTHYROXINE [Concomitant]
     Dosage: 75MCG PER DAY
     Route: 065
  4. SALBUTAMOL [Concomitant]
     Route: 055
  5. PANTOPRAZOL [Concomitant]
     Route: 065

REACTIONS (5)
  - Pyrexia [Recovered/Resolved]
  - Pain in extremity [Recovered/Resolved]
  - Malaise [Recovered/Resolved]
  - Fatigue [Recovered/Resolved]
  - Drug ineffective [Unknown]
